FAERS Safety Report 7573289-8 (Version None)
Quarter: 2011Q2

REPORT INFORMATION
  Report Type: 
  Country: None (occurrence: None)
  Receive Date: 20110627
  Receipt Date: 20110614
  Transmission Date: 20111010
  Serious: Yes (Other)
  Sender: FDA-Public Use
  Company Number: PHHY2011BR52835

PATIENT
  Sex: Female

DRUGS (6)
  1. OSCAL [Concomitant]
  2. METFORMIN HCL [Concomitant]
  3. ZOLEDRONIC ACID [Suspect]
     Dosage: 5MG/100ML
     Route: 042
  4. RAMIPRIL [Concomitant]
  5. TYLENOL-500 [Concomitant]
  6. HYDROXYCHLOROQUINE SULFATE [Concomitant]

REACTIONS (5)
  - NEOPLASM MALIGNANT [None]
  - SYSTEMIC LUPUS ERYTHEMATOSUS [None]
  - OSTEOARTHRITIS [None]
  - OSTEOPOROSIS [None]
  - PAIN [None]
